FAERS Safety Report 9518029 (Version 1)
Quarter: 2013Q3

REPORT INFORMATION
  Report Type: Spontaneous
  Country: US (occurrence: US)
  Receive Date: 20130912
  Receipt Date: 20130912
  Transmission Date: 20140515
  Serious: No
  Sender: FDA-Public Use
  Company Number: US-PFIZER INC-2013261599

PATIENT
  Age: 51 Year
  Sex: Female
  Weight: 112.47 kg

DRUGS (8)
  1. XELJANZ [Suspect]
     Indication: RHEUMATOID ARTHRITIS
     Dosage: 5 MG, UNK
  2. METHOTREXATE [Concomitant]
     Dosage: 2.5 MG, UNK
  3. NABUMETONE [Concomitant]
     Dosage: 500 MG, UNK
  4. METFORMIN [Concomitant]
     Dosage: 500 MG, UNK
  5. METOPROLOL [Concomitant]
     Dosage: 25 MG, UNK
  6. PHENTERMINE [Concomitant]
     Dosage: 30 MG, UNK
  7. LOSARTAN POT [Concomitant]
     Dosage: 50 MG, UNK
  8. VITAMIN D [Concomitant]
     Dosage: 400 IU, UNK

REACTIONS (3)
  - Pain [Unknown]
  - Musculoskeletal stiffness [Unknown]
  - Drug ineffective [Unknown]
